FAERS Safety Report 7579576-1 (Version None)
Quarter: 2011Q2

REPORT INFORMATION
  Report Type: 
  Country: None (occurrence: None)
  Receive Date: 20110622
  Receipt Date: 20110613
  Transmission Date: 20111010
  Serious: Yes (Life-Threatening, Hospitalization, Disabling, Other)
  Sender: FDA-Public Use
  Company Number: CRC-11-060

PATIENT
  Age: 66 Year
  Sex: Female
  Weight: 90.2658 kg

DRUGS (3)
  1. ALENDRONATE SODIUM [Suspect]
     Indication: OSTEOPOROSIS
     Dosage: ONCE WEEKLY BY MOUTH
     Route: 048
     Dates: start: 20091101, end: 20100608
  2. FOSAMAX PLUS D [Suspect]
     Indication: OSTEOPOROSIS
     Dates: start: 20030101, end: 20091101
  3. NEXIUM [Concomitant]

REACTIONS (8)
  - MUSCULAR WEAKNESS [None]
  - FALL [None]
  - OSTEOPOROSIS [None]
  - CHEST PAIN [None]
  - BONE PAIN [None]
  - PALPITATIONS [None]
  - JOINT INJURY [None]
  - CONTUSION [None]
